FAERS Safety Report 9299230 (Version 5)
Quarter: 2014Q3

REPORT INFORMATION
  Report Type: Spontaneous
  Country: US (occurrence: US)
  Receive Date: 20130520
  Receipt Date: 20140709
  Transmission Date: 20150326
  Serious: No
  Sender: FDA-Public Use
  Company Number: US-009507513-1305USA010159

PATIENT
  Sex: Male

DRUGS (1)
  1. PROPECIA [Suspect]
     Active Substance: FINASTERIDE
     Indication: ALOPECIA
     Dosage: 1 MG, QD
     Route: 048
     Dates: start: 20071101, end: 20091221

REACTIONS (19)
  - Neoplasm prostate [Unknown]
  - Testis discomfort [Recovered/Resolved]
  - Libido decreased [Recovering/Resolving]
  - Depression [Recovered/Resolved]
  - Emotional disorder [Unknown]
  - Depression [Recovered/Resolved]
  - Insomnia [Unknown]
  - Fatigue [Unknown]
  - Sexual dysfunction [Not Recovered/Not Resolved]
  - Micturition urgency [Unknown]
  - Urinary hesitation [Unknown]
  - Terminal dribbling [Unknown]
  - Testicular disorder [Unknown]
  - Stress [Unknown]
  - Anxiety [Unknown]
  - Anxiety [Recovered/Resolved]
  - Nocturia [Unknown]
  - Hypogonadism [Recovered/Resolved]
  - Erectile dysfunction [Recovering/Resolving]

NARRATIVE: CASE EVENT DATE: 2008
